FAERS Safety Report 20899424 (Version 1)
Quarter: 2022Q2

REPORT INFORMATION
  Report Type: Report from Study
  Country: CA (occurrence: CA)
  Receive Date: 20220601
  Receipt Date: 20220601
  Transmission Date: 20220720
  Serious: Yes (Other)
  Sender: FDA-Public Use
  Company Number: CA-JNJFOC-20220560784

PATIENT
  Age: 11 Year
  Sex: Female
  Weight: 41 kg

DRUGS (1)
  1. REMICADE [Suspect]
     Active Substance: INFLIXIMAB
     Indication: Crohn^s disease
     Route: 042
     Dates: start: 20200318

REACTIONS (2)
  - Haematochezia [Not Recovered/Not Resolved]
  - Anal skin tags [Unknown]

NARRATIVE: CASE EVENT DATE: 20220521
